FAERS Safety Report 7821070-4 (Version None)
Quarter: 2011Q4

REPORT INFORMATION
  Report Type: 
  Country: None (occurrence: None)
  Receive Date: 20111018
  Receipt Date: 20101201
  Transmission Date: 20120403
  Serious: No
  Sender: FDA-Public Use
  Company Number: US-ASTRAZENECA-2010SE56977

PATIENT
  Sex: Female
  Weight: 90.7 kg

DRUGS (13)
  1. EFFEXOR [Concomitant]
  2. PROVENTIL [Concomitant]
  3. KEPPRA [Concomitant]
  4. TOPROL-XL [Suspect]
     Route: 048
  5. BONIVA [Concomitant]
  6. SYMBICORT [Suspect]
     Indication: ASTHMA
     Dosage: 160 MCG BID
     Route: 055
     Dates: start: 20090101
  7. IMITREX [Concomitant]
  8. CLARINEX [Concomitant]
  9. PROTONIX [Concomitant]
  10. NITROGLYCERIN [Concomitant]
  11. METFORMIN HCL [Concomitant]
  12. AMPITRILIN [Concomitant]
  13. ALBUTEROL IN NEBULIZER [Concomitant]

REACTIONS (2)
  - ASTHMA [None]
  - DRUG DOSE OMISSION [None]
